FAERS Safety Report 9476679 (Version 1)
Quarter: 2013Q3

REPORT INFORMATION
  Report Type: Spontaneous
  Country: US (occurrence: US)
  Receive Date: 20130826
  Receipt Date: 20130826
  Transmission Date: 20140515
  Serious: No
  Sender: FDA-Public Use
  Company Number: US-BRISTOL-MYERS SQUIBB COMPANY-19044080

PATIENT
  Sex: Female

DRUGS (1)
  1. KENALOG INJ [Suspect]
     Indication: RHINITIS ALLERGIC
     Dosage: 2 INJECTIONS IN MAY 2012 AND JULY 2012.
     Dates: start: 201205

REACTIONS (3)
  - Injection site atrophy [Unknown]
  - Discomfort [Unknown]
  - Pain [Unknown]
